FAERS Safety Report 8507119-4 (Version None)
Quarter: 2012Q3

REPORT INFORMATION
  Report Type: 
  Country: None (occurrence: None)
  Receive Date: 20120703
  Receipt Date: 20120625
  Transmission Date: 20120928
  Serious: Yes (Hospitalization)
  Sender: FDA-Public Use
  Company Number: 2012SP029441

PATIENT
  Age: 69 Year
  Sex: Female

DRUGS (4)
  1. SPIRIVA [Concomitant]
  2. ASMANEX TWISTHALER [Suspect]
     Indication: CHRONIC OBSTRUCTIVE PULMONARY DISEASE
     Dosage: 200 MCG;BID;
     Dates: start: 20120601
  3. ASMANEX TWISTHALER [Suspect]
     Indication: EMPHYSEMA
     Dosage: 200 MCG;BID;
     Dates: start: 20120601
  4. FORADIL [Concomitant]

REACTIONS (4)
  - DYSPNOEA [None]
  - CONDITION AGGRAVATED [None]
  - WHEEZING [None]
  - OFF LABEL USE [None]
